FAERS Safety Report 5399979-3 (Version None)
Quarter: 2007Q3

REPORT INFORMATION
  Report Type: 
  Country: None (occurrence: None)
  Receive Date: 20070725
  Receipt Date: 20070710
  Transmission Date: 20080115
  Serious: Yes (Other)
  Sender: FDA-Public Use
  Company Number: S07-UKI-03106-01

PATIENT
  Sex: Female

DRUGS (2)
  1. CITALOPRAM HYDROBROMIDE [Suspect]
     Dosage: 10 MG QD PO
     Route: 048
     Dates: start: 20070630
  2. ORAL CONTRACEPTIVE (NOS) (ORAL CONTRACEPTIVE NOS) [Concomitant]

REACTIONS (2)
  - CONTUSION [None]
  - FAECES DISCOLOURED [None]
